FAERS Safety Report 8977013 (Version 2)
Quarter: 2014Q2

REPORT INFORMATION
  Report Type: Report from Study
  Country: US (occurrence: US)
  Receive Date: 20121220
  Receipt Date: 20140627
  Transmission Date: 20141212
  Serious: Yes (Hospitalization)
  Sender: FDA-Public Use
  Company Number: US-ELI_LILLY_AND_COMPANY-US201212005179

PATIENT
  Sex: Male

DRUGS (2)
  1. TADALAFIL [Suspect]
     Indication: PULMONARY ARTERIAL HYPERTENSION
     Dosage: 40 MG, QD
     Route: 065
     Dates: start: 20120625
  2. TADALAFIL [Suspect]
     Dosage: 40 MG, UNK
     Route: 065

REACTIONS (2)
  - Carotid artery stenosis [Unknown]
  - Fall [Unknown]
